FAERS Safety Report 13738220 (Version 12)
Quarter: 2017Q4

REPORT INFORMATION
  Report Type: Report from Study
  Country: NL (occurrence: NL)
  Receive Date: 20170710
  Receipt Date: 20171228
  Transmission Date: 20180320
  Serious: Yes (Death, Hospitalization)
  Sender: FDA-Public Use
  Company Number: PHHO2017NL010009

PATIENT
  Age: 77 Year
  Sex: Female
  Weight: 101 kg

DRUGS (8)
  1. MAGNESIUM HYDROXIDE. [Concomitant]
     Active Substance: MAGNESIUM HYDROXIDE
     Indication: PROPHYLAXIS
     Dosage: 724 MG, TID
     Route: 048
     Dates: start: 20170605
  2. NADROPARINE [Concomitant]
     Active Substance: NADROPARIN
     Indication: CARDIAC FAILURE CHRONIC
     Dosage: 15200 IU, QD
     Route: 048
     Dates: start: 20170510
  3. LETROZOLE. [Suspect]
     Active Substance: LETROZOLE
     Indication: BREAST CANCER
     Dosage: 3 MG, QD
     Route: 048
     Dates: start: 20170609
  4. OXYCODON [Concomitant]
     Active Substance: OXYCODONE
     Indication: PAIN
     Dosage: 5 MG, BID
     Route: 048
     Dates: start: 20170605
  5. AMITRIPTYLIN [Concomitant]
     Active Substance: AMITRIPTYLINE
     Indication: DEPRESSION
     Dosage: 10 MG, QD
     Route: 048
     Dates: start: 20140130
  6. OMEPRAZOL [Concomitant]
     Active Substance: OMEPRAZOLE
     Indication: PROPHYLAXIS
     Dosage: 20 MG, QD
     Route: 048
     Dates: start: 20150818
  7. ZOPICLON [Concomitant]
     Active Substance: ZOPICLONE
     Indication: SLEEP DISORDER
     Dosage: 10 MG, QD
     Route: 048
     Dates: start: 20170617
  8. LEE011 [Suspect]
     Active Substance: RIBOCICLIB
     Indication: BREAST CANCER
     Dosage: 600 MG, QD
     Route: 048
     Dates: start: 20170609, end: 20170620

REACTIONS (6)
  - Malignant pleural effusion [Fatal]
  - Empyema [Not Recovered/Not Resolved]
  - Respiratory failure [Fatal]
  - Hyponatraemia [Fatal]
  - Renal failure [Fatal]
  - Renal impairment [Not Recovered/Not Resolved]

NARRATIVE: CASE EVENT DATE: 20170620
